FAERS Safety Report 8602451-8 (Version None)
Quarter: 2012Q3

REPORT INFORMATION
  Report Type: 
  Country: None (occurrence: None)
  Receive Date: 20120817
  Receipt Date: 20120209
  Transmission Date: 20120928
  Serious: No
  Sender: FDA-Public Use
  Company Number: US-BRISTOL-MYERS SQUIBB COMPANY-16392961

PATIENT
  Sex: Female

DRUGS (1)
  1. CEENU [Suspect]
     Indication: BRAIN NEOPLASM
     Dosage: 1DF=CAPS

REACTIONS (1)
  - DYSPHAGIA [None]
